FAERS Safety Report 5877343-8 (Version None)
Quarter: 2008Q3

REPORT INFORMATION
  Report Type: 
  Country: None (occurrence: None)
  Receive Date: 20080908
  Receipt Date: 20080826
  Transmission Date: 20090109
  Serious: Yes (Hospitalization)
  Sender: FDA-Public Use
  Company Number: 2008EU001790

PATIENT
  Age: 42 Year
  Sex: Male

DRUGS (6)
  1. PROGRAF [Suspect]
     Indication: RENAL TRANSPLANT
     Dosage: 3.5 MG, BID, ORAL
     Route: 048
  2. AMOXICILLIN [Suspect]
     Indication: ENDOCARDITIS PROPHYLAXIS
     Dosage: 3 G, UID/QD
     Dates: start: 20080328
  3. CELLCEPT [Suspect]
     Indication: RENAL TRANSPLANT
     Dosage: 1 DF, BID, ORAL
     Route: 048
  4. PREDNISOLONE [Suspect]
     Indication: RENAL TRANSPLANT
     Dosage: 7.5 MG, UID/QD, ORAL
     Route: 048
  5. RAMIPRIL [Concomitant]
  6. LESOL (METHYLPREDNISOLONE SODIUM SUCCINATE) [Concomitant]

REACTIONS (1)
  - TOXOPLASMOSIS [None]
